FAERS Safety Report 8999483 (Version 2)
Quarter: 2013Q1

REPORT INFORMATION
  Report Type: Spontaneous
  Country: JP (occurrence: JP)
  Receive Date: 20130103
  Receipt Date: 20130204
  Transmission Date: 20140127
  Serious: Yes (Death, Hospitalization)
  Sender: FDA-Public Use
  Company Number: JP-GLAXOSMITHKLINE-B0855494A

PATIENT
  Age: 48 Year
  Sex: Female

DRUGS (6)
  1. LAMICTAL [Suspect]
     Indication: BIPOLAR DISORDER
     Dosage: 25MG PER DAY
     Route: 048
     Dates: start: 20120806, end: 201208
  2. LAMICTAL [Suspect]
     Indication: BIPOLAR DISORDER
     Dosage: 25MG PER DAY
     Route: 048
     Dates: start: 201208, end: 201209
  3. LAMICTAL [Suspect]
     Indication: BIPOLAR DISORDER
     Dosage: 50MG ALTERNATE DAYS
     Route: 048
     Dates: start: 201209
  4. ABILIFY [Concomitant]
     Dosage: 30MG ALTERNATE DAYS
  5. AKINETON [Concomitant]
     Dosage: 2MG ALTERNATE DAYS
     Route: 065
  6. VALERIN [Concomitant]
     Dosage: 1200MG ALTERNATE DAYS

REACTIONS (4)
  - Aplastic anaemia [Fatal]
  - Cerebral haemorrhage [Unknown]
  - Asthenia [Unknown]
  - Anaemia [Unknown]
